FAERS Safety Report 13188541 (Version 2)
Quarter: 2017Q1

REPORT INFORMATION
  Report Type: Spontaneous
  Country: BR (occurrence: BR)
  Receive Date: 20170206
  Receipt Date: 20170210
  Transmission Date: 20170428
  Serious: Yes (Other)
  Sender: FDA-Public Use
  Company Number: BR-PFIZER INC-2017042595

PATIENT
  Age: 55 Year
  Sex: Female
  Weight: 65 kg

DRUGS (8)
  1. FENOFIBRATE. [Concomitant]
     Active Substance: FENOFIBRATE
     Dosage: UNK
     Dates: end: 201612
  2. SOMALGIN [Suspect]
     Active Substance: ASPIRIN\DIHYDROXYALUMINUM AMINOACETATE ANHYDROUS\MAGNESIUM CARBONATE
     Dosage: ONCE A DAY (AT NIGHT AFTER DINNER)
     Dates: start: 2012
  3. DIGOXIN. [Concomitant]
     Active Substance: DIGOXIN
     Indication: FLUID RETENTION
     Dosage: UNK
  4. CARVEDILOL. [Suspect]
     Active Substance: CARVEDILOL
     Dosage: ONCE A DAY (AT NIGHT AFTER DINNER)
     Dates: start: 2012
  5. LIPITOR [Suspect]
     Active Substance: ATORVASTATIN CALCIUM
     Indication: CARDIAC MURMUR
     Dosage: ONCE A DAY (AT NIGHT AFTER DINNER)
     Route: 048
     Dates: start: 2012
  6. LIPITOR [Suspect]
     Active Substance: ATORVASTATIN CALCIUM
     Indication: PULMONARY HYPERTENSION
     Dosage: ONCE A DAY (AT LUNCH TIME)
     Route: 048
  7. CIPROFIBRATE [Suspect]
     Active Substance: CIPROFIBRATE
     Dosage: UNK
  8. FUROSEMIDE. [Concomitant]
     Active Substance: FUROSEMIDE
     Indication: FLUID RETENTION
     Dosage: UNK

REACTIONS (14)
  - Arrhythmia [Unknown]
  - Flatulence [Unknown]
  - Asthenia [Unknown]
  - Anxiety [Unknown]
  - Nervousness [Unknown]
  - Muscular weakness [Unknown]
  - Intentional product misuse [Unknown]
  - Abdominal discomfort [Unknown]
  - Salivary hypersecretion [Unknown]
  - Nausea [Unknown]
  - Palpitations [Unknown]
  - Paraesthesia [Unknown]
  - Sensation of foreign body [Unknown]
  - Myalgia [Unknown]
